FAERS Safety Report 12619494 (Version 1)
Quarter: 2016Q3

REPORT INFORMATION
  Report Type: Spontaneous
  Country: US (occurrence: US)
  Receive Date: 20160803
  Receipt Date: 20160803
  Transmission Date: 20161109
  Serious: No
  Sender: FDA-Public Use
  Company Number: US-PFIZER INC-2016370901

PATIENT
  Sex: Female

DRUGS (2)
  1. LYRICA [Suspect]
     Active Substance: PREGABALIN
     Dosage: UNK, 1X/DAY
  2. LYRICA [Suspect]
     Active Substance: PREGABALIN
     Dosage: 150 MG, 2X/DAY, (MORNING AND THEN TAKING ONE BEFORE SHE GO TO BED OVERNIGHT)

REACTIONS (3)
  - Drug intolerance [Unknown]
  - Intentional product use issue [Unknown]
  - Pain in extremity [Not Recovered/Not Resolved]
